FAERS Safety Report 4353368-9 (Version None)
Quarter: 2004Q2

REPORT INFORMATION
  Report Type: 
  Country: None (occurrence: None)
  Receive Date: 20040426
  Receipt Date: 20040409
  Transmission Date: 20050107
  Serious: No
  Sender: FDA-Public Use
  Company Number: THYM-10079

PATIENT

DRUGS (1)
  1. THYMOGLOBULIN [Suspect]

REACTIONS (5)
  - ASTHMA [None]
  - CONDITION AGGRAVATED [None]
  - CYTOKINE RELEASE SYNDROME [None]
  - HYPOXIA [None]
  - OXYGEN SATURATION DECREASED [None]
